FAERS Safety Report 4406661-5 (Version None)
Quarter: 2004Q3

REPORT INFORMATION
  Report Type: 
  Country: None (occurrence: None)
  Receive Date: 20040720
  Receipt Date: 20040705
  Transmission Date: 20050211
  Serious: Yes (Death)
  Sender: FDA-Public Use
  Company Number: 24521 (0)

PATIENT
  Age: 68 Year
  Sex: Female

DRUGS (3)
  1. THEOPHYLLINE [Suspect]
  2. PAROXETINE HCL [Suspect]
     Indication: DEPRESSION
     Dosage: ORAL
     Route: 048
     Dates: start: 20031001
  3. CLARITHROMYCIN [Suspect]
     Indication: LOWER RESPIRATORY TRACT INFECTION
     Route: 048
     Dates: start: 20031101, end: 20031101

REACTIONS (7)
  - CARDIOMYOPATHY [None]
  - CARDIOTOXICITY [None]
  - CORONARY ARTERY THROMBOSIS [None]
  - DRUG INTERACTION [None]
  - DRUG LEVEL INCREASED [None]
  - ELECTROCARDIOGRAM ABNORMAL [None]
  - MYOCARDIAL INFARCTION [None]
